FAERS Safety Report 9040953 (Version 1)
Quarter: 2013Q1

REPORT INFORMATION
  Report Type: Spontaneous
  Country: US (occurrence: None)
  Receive Date: 20130123
  Receipt Date: 20130123
  Transmission Date: 20140127
  Serious: Yes (Hospitalization)
  Sender: FDA-Public Use
  Company Number: None

PATIENT
  Sex: Female
  Weight: 73.89 kg

DRUGS (3)
  1. 5-FLUOROURACIL [Suspect]
     Dates: end: 20121230
  2. LEUCOVORIN CALCIUM [Suspect]
     Dates: end: 20121228
  3. ELOXATIN [Suspect]
     Dates: end: 20121228

REACTIONS (5)
  - Hernia [None]
  - Intestinal ischaemia [None]
  - Small intestinal obstruction [None]
  - Abdominal adhesions [None]
  - Ileus [None]
